FAERS Safety Report 10956923 (Version 3)
Quarter: 2015Q2

REPORT INFORMATION
  Report Type: Spontaneous
  Country: DE (occurrence: None)
  Receive Date: 20150324
  Receipt Date: 20150424
  Transmission Date: 20150821
  Serious: Yes (Hospitalization)
  Sender: FDA-Public Use
  Company Number: DE2015GSK037016

PATIENT
  Age: 50 Year
  Sex: Male
  Weight: 84 kg

DRUGS (4)
  1. TRUVADA [Concomitant]
     Active Substance: EMTRICITABINE\TENOFOVIR DISOPROXIL FUMARATE
  2. RAMIPRIL. [Concomitant]
     Active Substance: RAMIPRIL
  3. TIVICAY [Suspect]
     Active Substance: DOLUTEGRAVIR SODIUM
     Indication: HIV INFECTION
     Route: 048
     Dates: start: 20150228, end: 20150311
  4. PREZISTA [Concomitant]
     Active Substance: DARUNAVIR ETHANOLATE

REACTIONS (1)
  - Epistaxis [None]

NARRATIVE: CASE EVENT DATE: 20150309
